FAERS Safety Report 17125654 (Version 1)
Quarter: 2019Q4

REPORT INFORMATION
  Report Type: Spontaneous
  Country: DE (occurrence: DE)
  Receive Date: 20191208
  Receipt Date: 20191208
  Transmission Date: 20200122
  Serious: Yes (Death, Other)
  Sender: FDA-Public Use
  Company Number: NVSC2019DE058957

PATIENT
  Age: 58 Year

DRUGS (2)
  1. DOCETAXEL. [Suspect]
     Active Substance: DOCETAXEL
     Indication: PRODUCT USED FOR UNKNOWN INDICATION
     Dosage: UNK
     Route: 065
  2. VARGATEF [Suspect]
     Active Substance: NINTEDANIB
     Indication: PRODUCT USED FOR UNKNOWN INDICATION
     Dosage: UNK
     Route: 065

REACTIONS (11)
  - Death [Fatal]
  - Hyponatraemia [Unknown]
  - Metastases to meninges [Unknown]
  - Inappropriate antidiuretic hormone secretion [Unknown]
  - Leukopenia [Unknown]
  - Paraparesis [Unknown]
  - Delirium [Unknown]
  - Fatigue [Unknown]
  - Dermatitis [Unknown]
  - Malignant neoplasm progression [Unknown]
  - Hypokalaemia [Unknown]

NARRATIVE: CASE EVENT DATE: 20181220
